FAERS Safety Report 8245458-5 (Version None)
Quarter: 2012Q1

REPORT INFORMATION
  Report Type: 
  Country: None (occurrence: None)
  Receive Date: 20120329
  Receipt Date: 20120326
  Transmission Date: 20120608
  Serious: Yes (Life-Threatening)
  Sender: FDA-Public Use
  Company Number: US-MERCK-1203USA03631

PATIENT
  Age: 70 Year
  Sex: Male

DRUGS (2)
  1. ALOXI [Concomitant]
     Route: 065
  2. FOSAPREPITANT DIMEGLUMINE [Suspect]
     Indication: PROPHYLAXIS OF NAUSEA AND VOMITING
     Route: 051
     Dates: start: 20120326

REACTIONS (1)
  - BRONCHOSPASM [None]
